FAERS Safety Report 14011539 (Version 2)
Quarter: 2017Q4

REPORT INFORMATION
  Report Type: Other
  Country: PL (occurrence: PL)
  Receive Date: 20170926
  Receipt Date: 20171116
  Transmission Date: 20180321
  Serious: Yes (Hospitalization)
  Sender: FDA-Public Use
  Company Number: PL-MERCK KGAA-2027685

PATIENT
  Age: 44 Year
  Sex: Female

DRUGS (9)
  1. NOVOTHYROX [Suspect]
     Active Substance: LEVOTHYROXINE SODIUM
  2. HYDROCHLOROTHIAZIDE. [Concomitant]
     Active Substance: HYDROCHLOROTHIAZIDE
  3. NOVOTHYROX [Suspect]
     Active Substance: LEVOTHYROXINE SODIUM
  4. BISOPROLOL [Concomitant]
     Active Substance: BISOPROLOL
  5. CALCIUM CARBONATE. [Concomitant]
     Active Substance: CALCIUM CARBONATE
  6. NOVOTHYROX [Suspect]
     Active Substance: LEVOTHYROXINE SODIUM
     Indication: POST PROCEDURAL HYPOTHYROIDISM
  7. LISIHEXAL [Concomitant]
     Active Substance: LISINOPRIL
  8. LAMOTRIGINE. [Concomitant]
     Active Substance: LAMOTRIGINE
  9. ALPHACALCIDOL [Concomitant]
     Active Substance: ALFACALCIDOL

REACTIONS (1)
  - Hypercalcaemia [Recovered/Resolved]
